FAERS Safety Report 26010177 (Version 2)
Quarter: 2025Q4

REPORT INFORMATION
  Report Type: Spontaneous
  Country: US (occurrence: US)
  Receive Date: 20251107
  Receipt Date: 20251119
  Transmission Date: 20260117
  Serious: No
  Sender: BAUSCH AND LOMB
  Company Number: US-BAUSCHBL-2025BNL031090

PATIENT
  Sex: Female

DRUGS (7)
  1. MIEBO [Suspect]
     Active Substance: PERFLUOROHEXYLOCTANE
     Indication: Product used for unknown indication
  2. LOTEMAX [Suspect]
     Active Substance: LOTEPREDNOL ETABONATE
     Indication: Product used for unknown indication
  3. TIMOPTIC [Suspect]
     Active Substance: TIMOLOL MALEATE
     Indication: Product used for unknown indication
  4. LUMIFY [Suspect]
     Active Substance: BRIMONIDINE TARTRATE
     Indication: Product used for unknown indication
  5. LUMIFY [Suspect]
     Active Substance: BRIMONIDINE TARTRATE
  6. OFLOXACIN OPHTHALMIC [Suspect]
     Active Substance: OFLOXACIN
     Indication: Product used for unknown indication
  7. TRYPTYR [Suspect]
     Active Substance: ACOLTREMON
     Indication: Product used for unknown indication
     Route: 047
     Dates: start: 202509

REACTIONS (4)
  - Ill-defined disorder [Unknown]
  - Condition aggravated [Unknown]
  - Headache [Unknown]
  - Eye pain [Unknown]

NARRATIVE: CASE EVENT DATE: 20250901
